FAERS Safety Report 16308466 (Version 2)
Quarter: 2019Q3

REPORT INFORMATION
  Report Type: Report from Study
  Country: US (occurrence: US)
  Receive Date: 20190514
  Receipt Date: 20190702
  Transmission Date: 20191004
  Serious: Yes (Hospitalization)
  Sender: FDA-Public Use
  Company Number: PHHY2019US109240

PATIENT
  Sex: Male
  Weight: 68.37 kg

DRUGS (14)
  1. SPIRONOLACTONE. [Concomitant]
     Active Substance: SPIRONOLACTONE
     Indication: HYPERTENSION
     Dosage: 25 MG, BID
     Route: 048
     Dates: start: 2018
  2. LOSARTAN. [Suspect]
     Active Substance: LOSARTAN
     Indication: HYPERTENSION
     Dosage: UNK
     Route: 048
  3. FAMOTIDINE. [Concomitant]
     Active Substance: FAMOTIDINE
     Dosage: YES
     Route: 048
     Dates: start: 2017
  4. XOLAIR [Suspect]
     Active Substance: OMALIZUMAB
     Dosage: 300 MG, ONCE IN 4 WEEKS
     Route: 058
     Dates: start: 2017, end: 201901
  5. XOLAIR [Suspect]
     Active Substance: OMALIZUMAB
     Dosage: 300 MG, ONCE IN 4 WEEKS
     Route: 058
  6. CARVEDILOL. [Concomitant]
     Active Substance: CARVEDILOL
     Dosage: 4 TABLETS 2 TIMES PER DAY ;ONGOING: YES
     Route: 048
  7. FUROSEMIDE. [Concomitant]
     Active Substance: FUROSEMIDE
     Dosage: STARTED 25 YEARS AGO ;ONGOING: YES
     Route: 048
  8. FAMOTIDINE. [Concomitant]
     Active Substance: FAMOTIDINE
     Indication: FLUID RETENTION
     Dosage: 40 MG, BID
     Route: 048
     Dates: start: 2017
  9. SPIRONOLACTONE. [Concomitant]
     Active Substance: SPIRONOLACTONE
     Dosage: LESS THAN A YEAR AGO ;ONGOING: YES
     Route: 048
     Dates: start: 2018
  10. LISINOPRIL. [Concomitant]
     Active Substance: LISINOPRIL
     Indication: HYPERTENSION
     Route: 048
     Dates: start: 2015, end: 2016
  11. XOLAIR [Suspect]
     Active Substance: OMALIZUMAB
     Indication: ANGIOEDEMA
     Dosage: 300 MG, ONCE IN 4 WEEKS
     Route: 058
     Dates: start: 2016
  12. XOLAIR [Suspect]
     Active Substance: OMALIZUMAB
     Indication: IDIOPATHIC URTICARIA
     Dosage: 300 MG, ONCE IN 4 WEEKS
     Route: 058
     Dates: start: 2017, end: 2017
  13. CARVEDILOL. [Concomitant]
     Active Substance: CARVEDILOL
     Indication: HYPERTENSION
     Dosage: 6.25 MG, BID
     Route: 048
  14. FUROSEMIDE. [Concomitant]
     Active Substance: FUROSEMIDE
     Indication: FLUID RETENTION
     Dosage: 20 MG, BID
     Route: 048

REACTIONS (1)
  - Angioedema [Recovered/Resolved]

NARRATIVE: CASE EVENT DATE: 2017
